FAERS Safety Report 15553264 (Version 2)
Quarter: 2018Q4

REPORT INFORMATION
  Report Type: Other
  Country: PL (occurrence: PL)
  Receive Date: 20181026
  Receipt Date: 20181105
  Transmission Date: 20190205
  Serious: Yes (Life-Threatening, Hospitalization, Other)
  Sender: FDA-Public Use
  Company Number: PL-APOTEX-2018AP023156

PATIENT
  Age: 58 Year
  Sex: Female

DRUGS (4)
  1. MYCOPHENOLATE MOFETIL APOTEX [Suspect]
     Active Substance: MYCOPHENOLATE MOFETIL
     Indication: RENAL TRANSPLANT
     Dosage: UNK, UNKNOWN FREQ.
     Route: 065
  2. TACROLIMUS. [Suspect]
     Active Substance: TACROLIMUS
     Indication: RENAL TRANSPLANT
     Dosage: UNK UNK, UNKNOWN FREQ.
     Route: 065
  3. MIDAZOLAM [Suspect]
     Active Substance: MIDAZOLAM HYDROCHLORIDE
     Indication: SEDATION
     Dosage: UNK, UNKNOWN FREQ.
     Route: 065
  4. SIMULECT [Suspect]
     Active Substance: BASILIXIMAB
     Indication: RENAL TRANSPLANT
     Dosage: UNK, UNKNOWN FREQ.
     Route: 065

REACTIONS (31)
  - Diabetic macroangiopathy [Unknown]
  - Immunosuppressant drug level increased [Unknown]
  - Cardiotoxicity [Unknown]
  - Oedema peripheral [Unknown]
  - Delayed graft function [Unknown]
  - Loss of consciousness [Unknown]
  - Acid base balance abnormal [Recovering/Resolving]
  - Haematoma [Not Recovered/Not Resolved]
  - Arrhythmia [Unknown]
  - Upper respiratory tract infection [Unknown]
  - Pulmonary congestion [Unknown]
  - Brain natriuretic peptide increased [Unknown]
  - Escherichia urinary tract infection [Unknown]
  - Pneumonitis [Not Recovered/Not Resolved]
  - Electrocardiogram ST segment depression [Unknown]
  - Electrolyte imbalance [Recovered/Resolved]
  - Cardiac failure [Unknown]
  - Renal impairment [Unknown]
  - Anaemia [Unknown]
  - Intermittent claudication [Unknown]
  - Anuria [Not Recovered/Not Resolved]
  - Extremity necrosis [Unknown]
  - Transplant rejection [Unknown]
  - Hypotonia [Unknown]
  - Arteriosclerosis [Unknown]
  - Thrombocytosis [Unknown]
  - Acute coronary syndrome [Unknown]
  - Cardiogenic shock [Recovered/Resolved]
  - Coronary artery stenosis [Unknown]
  - Inflammation [Recovering/Resolving]
  - Cardiac arrest [Not Recovered/Not Resolved]
